FAERS Safety Report 9661797 (Version 2)
Quarter: 2013Q4

REPORT INFORMATION
  Report Type: Spontaneous
  Country: US (occurrence: US)
  Receive Date: 20131031
  Receipt Date: 20131031
  Transmission Date: 20140711
  Serious: No
  Sender: FDA-Public Use
  Company Number: US-PURDUE-USA-2010-0046353

PATIENT
  Age: 55 Year
  Sex: Female
  Weight: 78.91 kg

DRUGS (7)
  1. OXYCONTIN (NDA 22-272) [Suspect]
     Indication: COMPLEX REGIONAL PAIN SYNDROME
     Dosage: 80 MG, TID
     Dates: start: 201008
  2. OXYCONTIN (NDA 22-272) [Suspect]
     Indication: BACK PAIN
  3. SOMA [Concomitant]
     Indication: MUSCLE SPASMS
     Dosage: 350 MG, QD PRN
  4. VICODIN [Concomitant]
     Indication: PAIN
     Dosage: UNK UNK, Q4H
  5. ZANTAC [Concomitant]
     Indication: GASTRITIS
     Dosage: 150 MG, BID
  6. VALIUM                             /00017001/ [Concomitant]
     Indication: MUSCLE SPASMS
     Dosage: 10 MG, BID
  7. HYDROCODONE W/APAP                 /01554201/ [Concomitant]
     Indication: PAIN
     Dosage: 5 MG, Q4H

REACTIONS (20)
  - Breast abscess [Not Recovered/Not Resolved]
  - Chest wall abscess [Recovered/Resolved]
  - Abscess limb [Recovered/Resolved]
  - Furuncle [Unknown]
  - Weight decreased [Unknown]
  - Vaginal discharge [Recovered/Resolved]
  - Pain [Unknown]
  - Dysgeusia [Recovered/Resolved]
  - Urticaria [Unknown]
  - Pruritus [Unknown]
  - Anxiety [Recovered/Resolved]
  - Insomnia [Recovered/Resolved]
  - Diarrhoea [Recovered/Resolved]
  - Vomiting [Recovered/Resolved]
  - Local swelling [Unknown]
  - Decreased appetite [Unknown]
  - Nausea [Recovered/Resolved]
  - Rash [Recovered/Resolved]
  - Hyperhidrosis [Recovered/Resolved]
  - Palpitations [Recovered/Resolved]
